FAERS Safety Report 13285590 (Version 1)
Quarter: 2017Q1

REPORT INFORMATION
  Report Type: Spontaneous
  Country: US (occurrence: US)
  Receive Date: 20170301
  Receipt Date: 20170301
  Transmission Date: 20170428
  Serious: Yes (Hospitalization)
  Sender: FDA-Public Use
  Company Number: None

PATIENT
  Age: 42 Year
  Sex: Male

DRUGS (3)
  1. ADCIRCA [Suspect]
     Active Substance: TADALAFIL
     Indication: PULMONARY HYPERTENSION
     Route: 048
     Dates: start: 20160506, end: 201702
  2. XARELTO [Concomitant]
     Active Substance: RIVAROXABAN
  3. TORSEMIDE. [Concomitant]
     Active Substance: TORSEMIDE

REACTIONS (2)
  - Dialysis [None]
  - Renal failure [None]

NARRATIVE: CASE EVENT DATE: 201702
